FAERS Safety Report 4525616-3 (Version None)
Quarter: 2004Q4

REPORT INFORMATION
  Report Type: 
  Country: None (occurrence: None)
  Receive Date: 20041213
  Receipt Date: 20041213
  Transmission Date: 20050328
  Serious: Yes (Other)
  Sender: FDA-Public Use
  Company Number: None

PATIENT
  Age: 47 Year
  Sex: Female
  Weight: 63.5036 kg

DRUGS (3)
  1. COMBIVIR [Suspect]
     Indication: SYSTEMIC ANTIVIRAL TREATMENT
     Dates: start: 20041012, end: 20041020
  2. LEXIVIR   700 MGM   BID [Suspect]
     Dates: start: 20041012, end: 20041020
  3. NORVIR [Concomitant]

REACTIONS (5)
  - EYE SWELLING [None]
  - MEDICATION ERROR [None]
  - PRURITUS [None]
  - RASH GENERALISED [None]
  - SWELLING FACE [None]
